FAERS Safety Report 19246443 (Version 1)
Quarter: 2021Q2

REPORT INFORMATION
  Report Type: Spontaneous
  Country: US (occurrence: US)
  Receive Date: 20210512
  Receipt Date: 20210512
  Transmission Date: 20210717
  Serious: Yes (Hospitalization)
  Sender: FDA-Public Use
  Company Number: US-GLAXOSMITHKLINE-US2021097877

PATIENT
  Age: 48 Year
  Sex: Male

DRUGS (2)
  1. TRELEGY ELLIPTA [Suspect]
     Active Substance: FLUTICASONE FUROATE\UMECLIDINIUM BROMIDE\VILANTEROL TRIFENATATE
     Indication: PRODUCT USED FOR UNKNOWN INDICATION
     Dosage: UNK, QD, 100?62.5MCG INH 30PUSE
     Route: 055
     Dates: start: 20200528
  2. VENTOLIN HFA [Suspect]
     Active Substance: ALBUTEROL SULFATE
     Indication: DYSPNOEA
     Dosage: 2 PUFF(S), EVERY 4 HOURS AS NEEDED BY MOUTH,90 MCG
     Route: 055
     Dates: start: 20200528

REACTIONS (3)
  - Hospitalisation [Recovering/Resolving]
  - Haematoma [Unknown]
  - Rib fracture [Unknown]

NARRATIVE: CASE EVENT DATE: 20210305
